FAERS Safety Report 19901337 (Version 1)
Quarter: 2021Q3

REPORT INFORMATION
  Report Type: Spontaneous
  Country: FR (occurrence: FR)
  Receive Date: 20210930
  Receipt Date: 20210930
  Transmission Date: 20211014
  Serious: Yes (Hospitalization, Other)
  Sender: FDA-Public Use
  Company Number: FR-PFIZER INC-202101228272

PATIENT
  Age: 70 Year
  Sex: Male

DRUGS (4)
  1. VORICONAZOLE. [Suspect]
     Active Substance: VORICONAZOLE
     Dosage: 400 MG, ONCE DAILY (TWO ORAL DOSES WAS INITIATED)
     Route: 048
  2. VORICONAZOLE. [Interacting]
     Active Substance: VORICONAZOLE
     Dosage: UNK, (THE DOSAGE OF THE LATTER WAS REDUCED TO ONE?THIRD)
     Route: 048
  3. IMBRUVICA [Interacting]
     Active Substance: IBRUTINIB
     Indication: CHRONIC LYMPHOCYTIC LEUKAEMIA
     Dosage: 420 MG, ONCE DAILY
     Route: 048
     Dates: start: 201708
  4. RITUXIMAB. [Suspect]
     Active Substance: RITUXIMAB
     Indication: CHRONIC LYMPHOCYTIC LEUKAEMIA
     Dosage: UNK

REACTIONS (7)
  - Bronchopulmonary aspergillosis [Recovering/Resolving]
  - Spinal cord compression [Recovering/Resolving]
  - Hypogammaglobulinaemia [Unknown]
  - Intervertebral discitis [Recovering/Resolving]
  - Pleural effusion [Unknown]
  - Off label use [Unknown]
  - Drug interaction [Unknown]

NARRATIVE: CASE EVENT DATE: 201804
